FAERS Safety Report 24982020 (Version 1)
Quarter: 2025Q1

REPORT INFORMATION
  Report Type: Report from Study
  Country: US (occurrence: US)
  Receive Date: 20250218
  Receipt Date: 20250218
  Transmission Date: 20250409
  Serious: Yes (Other)
  Sender: NOVARTIS
  Company Number: US-002147023-NVSC2024US169187

PATIENT
  Age: 68 Year
  Sex: Male

DRUGS (1)
  1. KESIMPTA [Suspect]
     Active Substance: OFATUMUMAB
     Indication: Relapsing multiple sclerosis
     Dosage: 20 MG, QW
     Route: 058
     Dates: start: 20240816

REACTIONS (6)
  - Thrombosis [Recovered/Resolved]
  - Gait disturbance [Recovered/Resolved]
  - Therapeutic response shortened [Unknown]
  - Feeling abnormal [Recovering/Resolving]
  - Wrong technique in device usage process [Unknown]
  - Dysuria [Recovered/Resolved]

NARRATIVE: CASE EVENT DATE: 20240816
